FAERS Safety Report 11132902 (Version 1)
Quarter: 2015Q2

REPORT INFORMATION
  Report Type: Spontaneous
  Country: US (occurrence: None)
  Receive Date: 20150521
  Receipt Date: 20150521
  Transmission Date: 20150821
  Serious: Yes (Other)
  Sender: FDA-Public Use
  Company Number: None

PATIENT
  Age: 51 Year
  Sex: Male
  Weight: 102.06 kg

DRUGS (7)
  1. FETZIMA [Suspect]
     Active Substance: LEVOMILNACIPRAN HYDROCHLORIDE
     Indication: DEPRESSION
     Route: 048
  2. MVI [Concomitant]
     Active Substance: VITAMINS
  3. LOSARTAN [Concomitant]
     Active Substance: LOSARTAN
  4. VITAMIN D [Concomitant]
     Active Substance: CHOLECALCIFEROL
  5. ASA [Concomitant]
     Active Substance: ASPIRIN
  6. CO Q TEN [Concomitant]
  7. WELLBUTRIN [Concomitant]
     Active Substance: BUPROPION HYDROCHLORIDE

REACTIONS (7)
  - Libido decreased [None]
  - Anxiety [None]
  - Anorgasmia [None]
  - Restlessness [None]
  - Insomnia [None]
  - Depression [None]
  - Agitation [None]

NARRATIVE: CASE EVENT DATE: 20150501
